FAERS Safety Report 11154950 (Version 1)
Quarter: 2015Q2

REPORT INFORMATION
  Report Type: Spontaneous
  Country: US (occurrence: US)
  Receive Date: 20150602
  Receipt Date: 20150602
  Transmission Date: 20150821
  Serious: No
  Sender: FDA-Public Use
  Company Number: US-SUN PHARMACEUTICAL INDUSTRIES LTD-2015SUN00432

PATIENT
  Age: 11 Year
  Sex: Male

DRUGS (1)
  1. BUPROPION HYDROCHLORIDE EXTENDED RELEASE SR [Suspect]
     Active Substance: BUPROPION HYDROCHLORIDE
     Indication: ATTENTION DEFICIT/HYPERACTIVITY DISORDER
     Dosage: 200 MG IN MORNING AND 100 MG AT NIGHT
     Route: 048

REACTIONS (4)
  - Anger [Recovering/Resolving]
  - Agitation [Recovering/Resolving]
  - Product substitution issue [Unknown]
  - Therapeutic response decreased [Unknown]
